FAERS Safety Report 19786055 (Version 1)
Quarter: 2021Q3

REPORT INFORMATION
  Report Type: Spontaneous
  Country: HN (occurrence: HN)
  Receive Date: 20210903
  Receipt Date: 20210903
  Transmission Date: 20211014
  Serious: Yes (Hospitalization, Other)
  Sender: FDA-Public Use
  Company Number: HN-SUN PHARMACEUTICAL INDUSTRIES LTD-2021R1-309979

PATIENT
  Age: 56 Year
  Sex: Male

DRUGS (1)
  1. DEXAMETHASONE. [Suspect]
     Active Substance: DEXAMETHASONE
     Indication: COVID-19
     Dosage: 8 MILLIGRAM, DAILY
     Route: 065

REACTIONS (3)
  - Necrosis [Recovered/Resolved]
  - Osteonecrosis [Recovered/Resolved]
  - Mucormycosis [Recovered/Resolved]
